FAERS Safety Report 6785794-2 (Version None)
Quarter: 2010Q2

REPORT INFORMATION
  Report Type: 
  Country: None (occurrence: None)
  Receive Date: 20100622
  Receipt Date: 20100622
  Transmission Date: 20101027
  Serious: Yes (Hospitalization)
  Sender: FDA-Public Use
  Company Number: None

PATIENT
  Age: 93 Year
  Sex: Female
  Weight: 80.8 kg

DRUGS (11)
  1. FENTANYL-75 [Suspect]
     Indication: PAIN
     Dosage: 12 MCG Q72HRS TOPICALLY CHRONIC
     Route: 061
  2. AMBIEN [Suspect]
     Indication: PAIN
     Dosage: 5 MG QHS PO CHRONIC
     Route: 048
  3. APAP W/ CODEINE [Suspect]
     Indication: PAIN
     Dosage: 5 MG QHS PO CHRONIC
     Route: 048
  4. REQUIP [Concomitant]
  5. CELEBREX [Concomitant]
  6. COLACE [Concomitant]
  7. OMEPRAZOLE [Concomitant]
  8. DULCOLAX [Concomitant]
  9. MIRALAX [Concomitant]
  10. APAP TAB [Concomitant]
  11. LIDODERM [Concomitant]

REACTIONS (3)
  - COUGH [None]
  - HYPOXIA [None]
  - OXYGEN SATURATION DECREASED [None]
